FAERS Safety Report 6342374-0 (Version None)
Quarter: 2009Q3

REPORT INFORMATION
  Report Type: 
  Country: None (occurrence: None)
  Receive Date: 20090908
  Receipt Date: 20080425
  Transmission Date: 20100115
  Serious: Yes (Other)
  Sender: FDA-Public Use
  Company Number: US-ASTRAZENECA-2007UW21773

PATIENT
  Age: 694 Month
  Sex: Male
  Weight: 81.2 kg

DRUGS (23)
  1. SEROQUEL [Suspect]
     Indication: SLEEP DISORDER
     Dosage: 50-300 MG
     Route: 048
     Dates: start: 20030606
  2. SEROQUEL [Suspect]
     Indication: AFFECTIVE DISORDER
     Dosage: 50-300 MG
     Route: 048
     Dates: start: 20030606
  3. SEROQUEL [Suspect]
     Route: 048
     Dates: start: 20040101
  4. SEROQUEL [Suspect]
     Route: 048
     Dates: start: 20040101
  5. LANSOPRAZOLE [Concomitant]
     Indication: BARRETT'S OESOPHAGUS
     Route: 048
     Dates: start: 20021112, end: 20040702
  6. REGLAN [Concomitant]
     Indication: GASTROOESOPHAGEAL REFLUX DISEASE
     Route: 048
     Dates: start: 20021112
  7. REGLAN [Concomitant]
     Indication: BARRETT'S OESOPHAGUS
     Route: 048
     Dates: start: 20021112
  8. TERAZOSIN [Concomitant]
     Indication: BENIGN PROSTATIC HYPERPLASIA
     Dosage: 1-2 MG AT NIGHT
     Route: 048
     Dates: start: 20021112
  9. TERAZOSIN [Concomitant]
     Indication: BLOOD PRESSURE ABNORMAL
     Dosage: 1-2 MG AT NIGHT
     Route: 048
     Dates: start: 20021112
  10. KLONOPIN [Concomitant]
     Indication: AFFECTIVE DISORDER
     Dosage: 1-3 MG
     Route: 048
     Dates: start: 20040702
  11. KLONOPIN [Concomitant]
     Indication: ANXIETY
     Dosage: 1-3 MG
     Route: 048
     Dates: start: 20040702
  12. KLONOPIN [Concomitant]
     Indication: INSOMNIA
     Dosage: 1-3 MG
     Route: 048
     Dates: start: 20040702
  13. PROZAC [Concomitant]
     Indication: POST-TRAUMATIC STRESS DISORDER
     Dosage: 20-60 MG
     Route: 048
     Dates: start: 19700101
  14. PROZAC [Concomitant]
     Indication: AFFECTIVE DISORDER
     Dosage: 20-60 MG
     Route: 048
     Dates: start: 19700101
  15. GABAPENTIN [Concomitant]
     Indication: ANXIETY
     Dosage: 1800-3200 MG
     Route: 048
     Dates: start: 20030321
  16. GABAPENTIN [Concomitant]
     Indication: AFFECTIVE DISORDER
     Dosage: 1800-3200 MG
     Route: 048
     Dates: start: 20030321
  17. LOVASTATIN [Concomitant]
     Indication: HYPERLIPIDAEMIA
     Route: 048
     Dates: start: 20030108
  18. ASPIRIN [Concomitant]
     Indication: ANTICOAGULANT THERAPY
     Dates: start: 20030101
  19. OMEPRAZOLE [Concomitant]
     Indication: BARRETT'S OESOPHAGUS
     Route: 048
     Dates: start: 20040702
  20. DIVALPROEX SODIUM [Concomitant]
     Dosage: 250 -1750 MG
     Route: 048
     Dates: start: 20070124
  21. DOCUSATE SODIUM [Concomitant]
     Route: 048
     Dates: start: 20070325
  22. HYDROCHLOROTHIAZIDE [Concomitant]
     Indication: BLOOD PRESSURE ABNORMAL
     Route: 048
     Dates: start: 20070325
  23. SIMVASTATIN [Concomitant]
     Indication: BLOOD CHOLESTEROL INCREASED
     Route: 048
     Dates: start: 20070325

REACTIONS (6)
  - DIABETES MELLITUS [None]
  - DIABETES MELLITUS INADEQUATE CONTROL [None]
  - DIABETIC GASTROPARESIS [None]
  - DIABETIC NEUROPATHY [None]
  - HYPERGLYCAEMIA [None]
  - TYPE 2 DIABETES MELLITUS [None]
